FAERS Safety Report 10080251 (Version 4)
Quarter: 2014Q2

REPORT INFORMATION
  Report Type: Spontaneous
  Country: JP (occurrence: JP)
  Receive Date: 20140415
  Receipt Date: 20140616
  Transmission Date: 20141212
  Serious: Yes (Hospitalization)
  Sender: FDA-Public Use
  Company Number: JP-B.I. PHARMACEUTICALS,INC./RIDGEFIELD-2014-BI-16995NB

PATIENT
  Age: 31 Year
  Sex: Female

DRUGS (2)
  1. TRAZENTA [Suspect]
     Indication: DIABETES MELLITUS
     Dosage: 5 MG
     Route: 048
     Dates: start: 20140131
  2. GLYCYRON [Concomitant]
     Route: 065

REACTIONS (1)
  - Hepatic function abnormal [Recovered/Resolved]
